FAERS Safety Report 10086100 (Version 1)
Quarter: 2014Q2

REPORT INFORMATION
  Report Type: Spontaneous
  Country: US (occurrence: None)
  Receive Date: 20140415
  Receipt Date: 20140415
  Transmission Date: 20141212
  Serious: Yes (Hospitalization, Other)
  Sender: FDA-Public Use
  Company Number: 09-AUR-09712

PATIENT
  Age: 60 Year
  Sex: Female

DRUGS (1)
  1. CEFTRIAXONE (CEFTRIAXONE) [Suspect]
     Indication: BACTERIURIA
     Dosage: 2 GM, 1 D, INTRAVENOUS
     Route: 042

REACTIONS (6)
  - Renal failure acute [None]
  - Bacteriuria [None]
  - Pyuria [None]
  - Mental status changes [None]
  - Encephalopathy [None]
  - Pneumonia klebsiella [None]
